FAERS Safety Report 6952158-8 (Version None)
Quarter: 2010Q3

REPORT INFORMATION
  Report Type: 
  Country: None (occurrence: None)
  Receive Date: 20100829
  Receipt Date: 20100502
  Transmission Date: 20110219
  Serious: No
  Sender: FDA-Public Use
  Company Number: US-ABBOTT-09P-163-0590273-00

PATIENT
  Sex: Male
  Weight: 95.34 kg

DRUGS (7)
  1. NIASPAN [Suspect]
     Indication: HIGH DENSITY LIPOPROTEIN DECREASED
     Route: 048
     Dates: start: 20090608
  2. COUMADIN [Concomitant]
     Indication: THROMBOSIS
     Route: 048
     Dates: start: 20060101, end: 20090806
  3. COUMADIN [Concomitant]
     Route: 048
     Dates: start: 20060101, end: 20090805
  4. CIPRO [Concomitant]
     Indication: WOUND
     Route: 048
     Dates: start: 20090327
  5. BYSTOLIC [Concomitant]
     Indication: CARDIAC DISORDER
     Route: 048
     Dates: start: 20080801
  6. PREVACID [Concomitant]
     Indication: GASTROOESOPHAGEAL REFLUX DISEASE
     Route: 048
  7. NORCO [Concomitant]
     Indication: PAIN
     Dosage: 7.5/325
     Route: 048

REACTIONS (1)
  - INTERNATIONAL NORMALISED RATIO INCREASED [None]
